FAERS Safety Report 18641181 (Version 5)
Quarter: 2023Q2

REPORT INFORMATION
  Report Type: Spontaneous
  Country: US (occurrence: US)
  Receive Date: 20201221
  Receipt Date: 20230414
  Transmission Date: 20230722
  Serious: Yes (Other)
  Sender: FDA-Public Use
  Company Number: US-GILEAD-2020-0509289

PATIENT
  Sex: Female
  Weight: 73.923 kg

DRUGS (40)
  1. TRUVADA [Suspect]
     Active Substance: EMTRICITABINE\TENOFOVIR DISOPROXIL FUMARATE
     Indication: HIV infection
     Dosage: UNK
     Route: 048
     Dates: start: 2013
  2. TRUVADA [Suspect]
     Active Substance: EMTRICITABINE\TENOFOVIR DISOPROXIL FUMARATE
     Dosage: UNK
     Route: 048
     Dates: start: 2005, end: 2011
  3. TIVICAY [Concomitant]
     Active Substance: DOLUTEGRAVIR SODIUM
  4. DESCOVY [Concomitant]
     Active Substance: EMTRICITABINE\TENOFOVIR ALAFENAMIDE FUMARATE
  5. KALETRA [Concomitant]
     Active Substance: LOPINAVIR\RITONAVIR
  6. AMLODIPINE [Concomitant]
     Active Substance: AMLODIPINE BESYLATE
  7. AMOXICILLIN [Concomitant]
     Active Substance: AMOXICILLIN
  8. ARTIFICIAL TEARS (GLYCERIN\HYPROMELLOSES\POLYETHYLENE GLYCOL 400) [Concomitant]
     Active Substance: GLYCERIN\HYPROMELLOSES\POLYETHYLENE GLYCOL 400
  9. ATORVASTATIN [Concomitant]
     Active Substance: ATORVASTATIN
  10. AZITHROMYCIN [Concomitant]
     Active Substance: AZITHROMYCIN
  11. BONIVA [Concomitant]
     Active Substance: IBANDRONATE SODIUM
  12. CALCITRIOL [Concomitant]
     Active Substance: CALCITRIOL
  13. CALCIUM [Concomitant]
     Active Substance: CALCIUM
  14. CARVEDILOL [Concomitant]
     Active Substance: CARVEDILOL
  15. CICLOPIROX [Concomitant]
     Active Substance: CICLOPIROX
  16. CLOBETASOL [Concomitant]
     Active Substance: CLOBETASOL
  17. CLOTRIMAZOLE [Concomitant]
     Active Substance: CLOTRIMAZOLE
  18. VITAMINS [Concomitant]
     Active Substance: VITAMINS
  19. DOCUSATE [Concomitant]
     Active Substance: DOCUSATE
  20. FLUTICASONE [Concomitant]
     Active Substance: FLUTICASONE
  21. HUMALOG [Concomitant]
     Active Substance: INSULIN LISPRO
  22. HYDROXYZINE [Concomitant]
     Active Substance: HYDROXYZINE HYDROCHLORIDE
  23. HYDROQUINONE [Concomitant]
     Active Substance: HYDROQUINONE
  24. LANTUS [Concomitant]
     Active Substance: INSULIN GLARGINE
  25. LEVOTHYROXINE [Concomitant]
     Active Substance: LEVOTHYROXINE
  26. LIDOCAINE [Concomitant]
     Active Substance: LIDOCAINE
  27. METRONIDAZOLE [Concomitant]
     Active Substance: METRONIDAZOLE
  28. OXYCODONE [Concomitant]
     Active Substance: OXYCODONE
  29. HIGH DENSITY POLYETHYLENE [Concomitant]
     Active Substance: HIGH DENSITY POLYETHYLENE
  30. PREDNISONE [Concomitant]
     Active Substance: PREDNISONE
  31. PRAVASTATIN [Concomitant]
     Active Substance: PRAVASTATIN
  32. TIROSINT [Concomitant]
     Active Substance: LEVOTHYROXINE SODIUM
  33. VITAMIN D3 [Concomitant]
     Active Substance: CHOLECALCIFEROL
  34. NEPHRO [Concomitant]
  35. NITROFURANTOIN MACROCRYSTALS [Concomitant]
     Active Substance: NITROFURANTOIN
  36. OMEGA-3 FATTY ACIDS [Concomitant]
     Active Substance: OMEGA-3 FATTY ACIDS
  37. SENNA [Concomitant]
     Active Substance: SENNA LEAF\SENNOSIDES\SENNOSIDES A AND B
  38. VITAMIN B12 [Concomitant]
     Active Substance: CYANOCOBALAMIN
  39. VITAMIN C [Concomitant]
     Active Substance: ASCORBIC ACID
  40. VITAMIN E [Concomitant]
     Active Substance: .ALPHA.-TOCOPHEROL

REACTIONS (13)
  - Chronic kidney disease [Not Recovered/Not Resolved]
  - Osteoporosis [Unknown]
  - Renal impairment [Unknown]
  - Renal impairment [Not Recovered/Not Resolved]
  - End stage renal disease [Not Recovered/Not Resolved]
  - Pain [Unknown]
  - Emotional distress [Unknown]
  - Anxiety [Unknown]
  - Anhedonia [Unknown]
  - Bone density decreased [Not Recovered/Not Resolved]
  - Bone demineralisation [Not Recovered/Not Resolved]
  - Osteopenia [Not Recovered/Not Resolved]
  - Intervertebral disc degeneration [Unknown]

NARRATIVE: CASE EVENT DATE: 20100101
